FAERS Safety Report 5442893-5 (Version None)
Quarter: 2007Q3

REPORT INFORMATION
  Report Type: 
  Country: None (occurrence: None)
  Receive Date: 20070831
  Receipt Date: 20070831
  Transmission Date: 20080115
  Serious: Yes (Other)
  Sender: FDA-Public Use
  Company Number: None

PATIENT
  Age: 45 Year
  Sex: Male
  Weight: 88.2 kg

DRUGS (15)
  1. HYZAAR [Suspect]
     Indication: HYPERTENSION
     Dosage: 1 TAB QOD PO
     Route: 048
  2. TRUVADA [Suspect]
     Indication: HIV INFECTION
     Dosage: 1 TAB PO QD
     Route: 048
  3. LORAZEPAM [Concomitant]
  4. AMBIEN CR [Concomitant]
  5. CIALIS [Concomitant]
  6. ZADITOR [Concomitant]
  7. NASONEX [Concomitant]
  8. VALTREX [Concomitant]
  9. NEXIUM [Concomitant]
  10. SPORANOX [Concomitant]
  11. LEXIVA [Concomitant]
  12. NORVIR [Concomitant]
  13. VALPROIC ACID [Concomitant]
  14. RALTEGRAVIR POTASSIUM [Concomitant]
  15. WELLBRUTIN XL [Concomitant]

REACTIONS (1)
  - HYPOPHOSPHATAEMIA [None]
